FAERS Safety Report 24220895 (Version 2)
Quarter: 2024Q4

REPORT INFORMATION
  Report Type: Report from Study
  Country: US (occurrence: US)
  Receive Date: 20240819
  Receipt Date: 20241024
  Transmission Date: 20250115
  Serious: Yes (Hospitalization)
  Sender: ACADIA PHARMACEUTICALS
  Company Number: US-ACADIA PHARMACEUTICALS INC.-ACA-2024-PIM-003992

PATIENT
  Sex: Female

DRUGS (1)
  1. NUPLAZID [Suspect]
     Active Substance: PIMAVANSERIN TARTRATE
     Indication: Parkinson^s disease psychosis
     Dosage: 34 MILLIGRAM, QD
     Route: 048

REACTIONS (10)
  - Urinary tract infection [Unknown]
  - Decreased appetite [Unknown]
  - Insomnia [Unknown]
  - Overweight [Unknown]
  - Sleep disorder [Unknown]
  - Feeling abnormal [Unknown]
  - Aggression [Unknown]
  - Hallucination, visual [Unknown]
  - Drug ineffective [Unknown]
  - Peripheral swelling [Unknown]
